FAERS Safety Report 21855849 (Version 1)
Quarter: 2023Q1

REPORT INFORMATION
  Report Type: Spontaneous
  Country: GB (occurrence: GB)
  Receive Date: 20230112
  Receipt Date: 20230112
  Transmission Date: 20230418
  Serious: Yes (Other)
  Sender: FDA-Public Use
  Company Number: None

PATIENT

DRUGS (5)
  1. ACETAMINOPHEN [Suspect]
     Active Substance: ACETAMINOPHEN
     Indication: Dysmenorrhoea
     Dosage: UNK
     Route: 065
     Dates: start: 20221227, end: 20221227
  2. DIPHENHYDRAMINE HYDROCHLORIDE [Suspect]
     Active Substance: DIPHENHYDRAMINE HYDROCHLORIDE
     Indication: Dysmenorrhoea
     Dosage: UNK
     Route: 065
     Dates: start: 20221227, end: 20221227
  3. CAFFEINE [Suspect]
     Active Substance: CAFFEINE
     Indication: Dysmenorrhoea
     Dosage: UNK
     Route: 065
     Dates: start: 20221227, end: 20221227
  4. CODEINE [Suspect]
     Active Substance: CODEINE
     Indication: Dysmenorrhoea
     Dosage: UNK
     Route: 065
     Dates: start: 20221227, end: 20221227
  5. MEFENAMIC ACID [Concomitant]
     Active Substance: MEFENAMIC ACID
     Indication: Dysmenorrhoea
     Dosage: UNK
     Dates: start: 20221227

REACTIONS (4)
  - Abdominal pain upper [Not Recovered/Not Resolved]
  - Tremor [Recovered/Resolved]
  - Nausea [Recovering/Resolving]
  - Tachycardia [Recovering/Resolving]

NARRATIVE: CASE EVENT DATE: 20221227
